FAERS Safety Report 7900398-3 (Version None)
Quarter: 2011Q4

REPORT INFORMATION
  Report Type: 
  Country: None (occurrence: None)
  Receive Date: 20111108
  Receipt Date: 20111102
  Transmission Date: 20120403
  Serious: No
  Sender: FDA-Public Use
  Company Number: US-PFIZER INC-2011268633

PATIENT
  Sex: Female
  Weight: 55.329 kg

DRUGS (7)
  1. METFORMIN HYDROCHLORIDE [Concomitant]
     Indication: DIABETES MELLITUS
     Dosage: 500 MG, 3X/DAY
  2. LIPITOR [Concomitant]
     Dosage: 20 MG, 1X/DAY
     Route: 048
  3. PROCARDIA XL [Suspect]
     Indication: PROPHYLAXIS
     Dosage: 30 MG, 2X/DAY
  4. MULTI-VITAMINS [Concomitant]
     Dosage: UNK
  5. GLYBURIDE [Concomitant]
     Indication: DIABETES MELLITUS
     Dosage: 75 MG, 2X/DAY
  6. PROCARDIA XL [Suspect]
     Dosage: 60 MG, 2X/DAY
     Route: 048
     Dates: start: 20111001, end: 20111001
  7. LIPITOR [Concomitant]
     Dosage: 40 MG, 1X/DAY
     Route: 048

REACTIONS (2)
  - FALL [None]
  - DIZZINESS [None]
